FAERS Safety Report 25571645 (Version 1)
Quarter: 2025Q3

REPORT INFORMATION
  Report Type: Spontaneous
  Country: US (occurrence: US)
  Receive Date: 20250717
  Receipt Date: 20250717
  Transmission Date: 20251020
  Serious: Yes (Death)
  Sender: ROCHE
  Company Number: US-ROCHE-10000335369

PATIENT
  Age: 38 Year
  Sex: Female

DRUGS (4)
  1. RITUXIMAB [Suspect]
     Active Substance: RITUXIMAB
     Indication: Systemic lupus erythematosus
     Route: 065
  2. MYCOPHENOLIC ACID [Suspect]
     Active Substance: MYCOPHENOLIC ACID
     Indication: Systemic lupus erythematosus
     Route: 065
  3. HYDROXYCHLOROQUINE [Suspect]
     Active Substance: HYDROXYCHLOROQUINE
     Indication: Systemic lupus erythematosus
     Route: 065
  4. WARFARIN [Concomitant]
     Active Substance: WARFARIN

REACTIONS (5)
  - Adenovirus infection [Fatal]
  - Antiphospholipid syndrome [Fatal]
  - Pulmonary alveolar haemorrhage [Fatal]
  - Arrhythmia [Fatal]
  - Hyperkalaemia [Fatal]
